FAERS Safety Report 7758688-3 (Version None)
Quarter: 2011Q3

REPORT INFORMATION
  Report Type: 
  Country: None (occurrence: None)
  Receive Date: 20110919
  Receipt Date: 20100607
  Transmission Date: 20111222
  Serious: No
  Sender: FDA-Public Use
  Company Number: US-BAYER-201025722NA

PATIENT
  Age: 39 Year
  Sex: Female

DRUGS (1)
  1. MIRENA [Suspect]
     Indication: CONTRACEPTION
     Dosage: 20 ?G, CONT
     Route: 015
     Dates: start: 20080612, end: 20100605

REACTIONS (6)
  - DEVICE EXPULSION [None]
  - MALAISE [None]
  - OVARIAN CYST [None]
  - PAIN [None]
  - VAGINAL HAEMORRHAGE [None]
  - MEDICAL DEVICE DISCOMFORT [None]
